FAERS Safety Report 9996448 (Version 2)
Quarter: 2014Q1

REPORT INFORMATION
  Report Type: Spontaneous
  Country: CA (occurrence: CA)
  Receive Date: 20140311
  Receipt Date: 20140311
  Transmission Date: 20141002
  Serious: Yes (Other)
  Sender: FDA-Public Use
  Company Number: CA-ELI_LILLY_AND_COMPANY-CA201311001864

PATIENT
  Sex: Female

DRUGS (10)
  1. ADCIRCA [Suspect]
  2. VOLIBRIS [Suspect]
     Indication: PULMONARY HYPERTENSION
     Dosage: 5 MG, QD
     Dates: start: 20131023, end: 20131030
  3. VOLIBRIS [Suspect]
     Dosage: 10 MG, QD
     Dates: start: 20131112
  4. POTASSIUM CHLORIDE [Concomitant]
  5. SPIROLACTON [Concomitant]
  6. LIPITOR [Concomitant]
  7. FOLIC ACID [Concomitant]
  8. LYRICA [Concomitant]
  9. OMEGA 3                            /01334101/ [Concomitant]
  10. METOLAZONE [Concomitant]

REACTIONS (5)
  - Cardiomegaly [Not Recovered/Not Resolved]
  - Cardiac failure [Not Recovered/Not Resolved]
  - Palpitations [Recovered/Resolved]
  - Dyspnoea [Recovering/Resolving]
  - Oedema peripheral [Unknown]
